FAERS Safety Report 7137827-1 (Version None)
Quarter: 2010Q4

REPORT INFORMATION
  Report Type: 
  Country: None (occurrence: None)
  Receive Date: 20101206
  Receipt Date: 20101122
  Transmission Date: 20110411
  Serious: Yes (Other)
  Sender: FDA-Public Use
  Company Number: GB-NOVOPROD-317911

PATIENT
  Age: 2 Year
  Sex: Male
  Weight: 10 kg

DRUGS (1)
  1. NOVOLIN 70/30 [Suspect]
     Indication: OFF LABEL USE

REACTIONS (3)
  - HYPOGLYCAEMIC COMA [None]
  - INTENTIONAL DRUG MISUSE [None]
  - VICTIM OF CHILD ABUSE [None]
